FAERS Safety Report 4990389-7 (Version None)
Quarter: 2006Q2

REPORT INFORMATION
  Report Type: 
  Country: None (occurrence: None)
  Receive Date: 20060427
  Receipt Date: 20060425
  Transmission Date: 20061013
  Serious: Yes (Hospitalization, Other)
  Sender: FDA-Public Use
  Company Number: HQWYE496323MAR06

PATIENT
  Age: 15 Year
  Sex: Female

DRUGS (1)
  1. ADVIL [Suspect]
     Dosage: 20 TABLETS PER 200 MG, 40 TABLETS PER 400 MG AND 50 TABLETS PER 600 MG (50 G = 862 MG/KG BODY WEIGHT
     Route: 048

REACTIONS (7)
  - ABDOMINAL PAIN UPPER [None]
  - DRUG TOXICITY [None]
  - INTENTIONAL OVERDOSE [None]
  - LOSS OF CONSCIOUSNESS [None]
  - NEUROLOGICAL SYMPTOM [None]
  - SUICIDE ATTEMPT [None]
  - VOMITING [None]
